FAERS Safety Report 17920162 (Version 1)
Quarter: 2020Q2

REPORT INFORMATION
  Report Type: Spontaneous
  Country: US (occurrence: US)
  Receive Date: 20200620
  Receipt Date: 20200620
  Transmission Date: 20200714
  Serious: Yes (Other)
  Sender: FDA-Public Use
  Company Number: US-TEVA-2020-US-1788852

PATIENT
  Sex: Female

DRUGS (5)
  1. VITAMIN B3 [Concomitant]
     Active Substance: NIACIN
  2. FLAXSEED [Concomitant]
     Active Substance: FLAX SEED
  3. VITAMIN B COMPLEX [Concomitant]
     Active Substance: CYANOCOBALAMIN\DEXPANTHENOL\NIACINAMIDE\PYRIDOXINE HYDROCHLORIDE\RIBOFLAVIN 5^-PHOSPHATE SODIUM\THIAMINE HYDROCHLORIDE\VITAMIN B COMPLEX
  4. COPAXONE [Suspect]
     Active Substance: GLATIRAMER ACETATE
     Indication: MULTIPLE SCLEROSIS
     Route: 065
     Dates: start: 1996
  5. VITAMIN K3 [Concomitant]

REACTIONS (4)
  - Injection site reaction [Unknown]
  - Skin atrophy [Unknown]
  - Paralysis [Unknown]
  - Blindness transient [Unknown]
